FAERS Safety Report 11926223 (Version 2)
Quarter: 2016Q1

REPORT INFORMATION
  Report Type: Spontaneous
  Country: JP (occurrence: JP)
  Receive Date: 20160119
  Receipt Date: 20160218
  Transmission Date: 20160526
  Serious: Yes (Death, Other)
  Sender: FDA-Public Use
  Company Number: JP-ROCHE-1642007

PATIENT
  Age: 56 Year
  Sex: Female
  Weight: 48 kg

DRUGS (18)
  1. GASTER [Concomitant]
     Active Substance: FAMOTIDINE
     Indication: PROPHYLAXIS
     Route: 041
     Dates: start: 20150715, end: 20150715
  2. CELECOX [Concomitant]
     Active Substance: CELECOXIB
     Indication: ANALGESIC THERAPY
     Route: 048
     Dates: start: 20150704
  3. TRAVELMIN (DIPHENHYDRAMINE SALICYLATE/DIPROPHYLLINE) [Concomitant]
     Indication: PROPHYLAXIS
     Route: 048
     Dates: start: 20150629
  4. AVASTIN [Suspect]
     Active Substance: BEVACIZUMAB
     Indication: OVARIAN CANCER
     Dosage: TREATMENT LINE: 8?COMPLETED TREATMENT CYCLE NUMBER: 3
     Route: 041
     Dates: start: 20150715, end: 20150914
  5. DEXART [Concomitant]
     Active Substance: DEXAMETHASONE SODIUM PHOSPHATE
     Indication: PROPHYLAXIS
     Route: 041
     Dates: start: 20150805, end: 20150805
  6. DAIKENCHUTO [Concomitant]
     Active Substance: HERBALS
     Indication: CONSTIPATION
     Route: 048
     Dates: start: 20150819, end: 20150924
  7. SODIUM PICOSULFATE [Concomitant]
     Active Substance: SODIUM PICOSULFATE
     Indication: CONSTIPATION
     Dosage: AMOUNT OF SINGLE-DOSE: 5 KNOBS
     Route: 048
     Dates: start: 20150821, end: 20150924
  8. PACLITAXEL. [Concomitant]
     Active Substance: PACLITAXEL
     Indication: OVARIAN CANCER
     Route: 041
     Dates: start: 20150715, end: 20150914
  9. ALOXI [Concomitant]
     Active Substance: PALONOSETRON HYDROCHLORIDE
     Indication: PROPHYLAXIS
     Route: 041
     Dates: start: 20150914, end: 20150914
  10. DEXAMETHASONE. [Suspect]
     Active Substance: DEXAMETHASONE
     Indication: PRODUCT USED FOR UNKNOWN INDICATION
     Dosage: DOSAGE IS UNCERTAIN.
     Route: 065
  11. GASCON [Concomitant]
     Active Substance: DIMETHICONE
     Indication: ABDOMINAL DISTENSION
     Route: 048
     Dates: start: 20150824, end: 20150924
  12. GOREISAN [Concomitant]
     Active Substance: HERBALS
     Indication: OEDEMA
     Route: 048
     Dates: start: 20150702
  13. DECADRON [Concomitant]
     Active Substance: DEXAMETHASONE
     Indication: OEDEMA
     Route: 048
     Dates: start: 20150707
  14. LECICARBON [Concomitant]
     Active Substance: SODIUM BICARBONATE\SODIUM PHOSPHATE, MONOBASIC
     Indication: CONSTIPATION
     Route: 054
     Dates: start: 20150819, end: 20150924
  15. MAGMITT [Concomitant]
     Active Substance: MAGNESIUM OXIDE
     Indication: CONSTIPATION
     Route: 048
     Dates: start: 20150409, end: 20150924
  16. FERROUS SULFATE [Concomitant]
     Active Substance: FERROUS SULFATE\FERROUS SULFATE, DRIED
     Indication: ANAEMIA
     Route: 048
     Dates: start: 20150702, end: 20150924
  17. CARBOPLATIN. [Suspect]
     Active Substance: CARBOPLATIN
     Indication: OVARIAN CANCER
     Dosage: COMPLETED TREATMENT CYCLE NUMBER: 3
     Route: 041
     Dates: start: 20150715, end: 20150805
  18. MAGMITT [Concomitant]
     Active Substance: MAGNESIUM OXIDE
     Indication: CONSTIPATION
     Route: 048

REACTIONS (7)
  - Malignant pleural effusion [Fatal]
  - Coagulation test abnormal [Unknown]
  - Cancer pain [Unknown]
  - Gastrointestinal perforation [Fatal]
  - Intestinal obstruction [Recovered/Resolved]
  - Nausea [Recovered/Resolved]
  - Respiratory failure [Fatal]

NARRATIVE: CASE EVENT DATE: 20150805
